FAERS Safety Report 8112252-5 (Version None)
Quarter: 2012Q1

REPORT INFORMATION
  Report Type: 
  Country: None (occurrence: None)
  Receive Date: 20120202
  Receipt Date: 20120202
  Transmission Date: 20120608
  Serious: Yes (Hospitalization)
  Sender: FDA-Public Use
  Company Number: None

PATIENT
  Age: 59 Year
  Sex: Male

DRUGS (2)
  1. SOMA [Suspect]
     Indication: PAIN MANAGEMENT
     Dosage: 350MG BID 047
     Route: 048
  2. OXYCODONE HCL AND ACETAMINOPHEN [Suspect]
     Indication: PAIN MANAGEMENT
     Dosage: 10-325MG QID 047
     Route: 048

REACTIONS (3)
  - INCORRECT DOSE ADMINISTERED [None]
  - ABNORMAL BEHAVIOUR [None]
  - DYSARTHRIA [None]
